FAERS Safety Report 7995614-6 (Version None)
Quarter: 2011Q4

REPORT INFORMATION
  Report Type: 
  Country: None (occurrence: None)
  Receive Date: 20111220
  Receipt Date: 20111212
  Transmission Date: 20120403
  Serious: Yes (Life-Threatening, Hospitalization)
  Sender: FDA-Public Use
  Company Number: SI-SANOFI-AVENTIS-2011SA078821

PATIENT
  Age: 64 Year
  Sex: Female

DRUGS (5)
  1. MULTAQ [Suspect]
     Indication: VENTRICULAR TACHYCARDIA
     Route: 048
     Dates: start: 20101130, end: 20101207
  2. SIMVASTATIN [Concomitant]
  3. LEKOPTIN [Concomitant]
  4. ANDOL [Concomitant]
  5. LOSARTAN POTASSIUM [Concomitant]

REACTIONS (3)
  - TACHYCARDIA [None]
  - UNDERDOSE [None]
  - OFF LABEL USE [None]
